FAERS Safety Report 7806659-0 (Version None)
Quarter: 2011Q4

REPORT INFORMATION
  Report Type: 
  Country: None (occurrence: None)
  Receive Date: 20111005
  Receipt Date: 20110923
  Transmission Date: 20120403
  Serious: Yes (Other)
  Sender: FDA-Public Use
  Company Number: 2011SP045422

PATIENT
  Sex: Male

DRUGS (3)
  1. TELAPREVIR [Suspect]
     Indication: HEPATITIS C
     Dates: start: 20110916
  2. RIBAVIRIN [Suspect]
     Indication: HEPATITIS C
     Dates: start: 20110916
  3. PEG-INTRON [Suspect]
     Indication: HEPATITIS C
     Dates: start: 20110916

REACTIONS (7)
  - PRURITUS [None]
  - VOMITING [None]
  - RASH MACULAR [None]
  - DEPRESSION [None]
  - NIGHTMARE [None]
  - DIARRHOEA [None]
  - DIARRHOEA HAEMORRHAGIC [None]
